FAERS Safety Report 6276269-8 (Version None)
Quarter: 2009Q3

REPORT INFORMATION
  Report Type: 
  Country: None (occurrence: None)
  Receive Date: 20090720
  Receipt Date: 20090720
  Transmission Date: 20100115
  Serious: Yes (Hospitalization)
  Sender: FDA-Public Use
  Company Number: None

PATIENT
  Age: 66 Year
  Sex: Female
  Weight: 53.3 kg

DRUGS (17)
  1. SUNITINIB [Suspect]
     Indication: NON-SMALL CELL LUNG CANCER
     Dosage: 25 MG, QD, PO
     Route: 048
     Dates: start: 20090612, end: 20090623
  2. RAPAMYCIN [Suspect]
     Indication: NON-SMALL CELL LUNG CANCER
     Dosage: 2 MG, QD, PO
     Route: 048
     Dates: start: 20090612, end: 20090623
  3. CODEINE [Concomitant]
  4. METOPROLOL SUCCINATE [Concomitant]
  5. MULTI-VITAMIN [Concomitant]
  6. OMEPRAZOLE [Concomitant]
  7. RESVERATROL [Concomitant]
  8. SELENIUM [Concomitant]
  9. SENOKOT [Concomitant]
  10. TESSALON [Concomitant]
  11. FUROSEMIDE [Concomitant]
  12. ASCORBIC ACID [Concomitant]
  13. VITAMIN D [Concomitant]
  14. VITAMIN E [Concomitant]
  15. VITAMIN B-12 [Concomitant]
  16. FISH OIL [Concomitant]
  17. CO-Q 10 [Concomitant]

REACTIONS (2)
  - INJECTION SITE INFECTION [None]
  - PYREXIA [None]
